FAERS Safety Report 7548421-2 (Version None)
Quarter: 2011Q2

REPORT INFORMATION
  Report Type: 
  Country: None (occurrence: None)
  Receive Date: 20110615
  Receipt Date: 20110531
  Transmission Date: 20111010
  Serious: Yes (Other)
  Sender: FDA-Public Use
  Company Number: US-SOLVAY-00211004310

PATIENT
  Age: 55 Year
  Sex: Female
  Weight: 72.727 kg

DRUGS (3)
  1. LEVOTHYROXINE SODIUM [Concomitant]
     Indication: THYROXINE THERAPY
     Dosage: DAILY DOSE:  UNKNOWN
     Route: 065
  2. PROMETRIUM [Suspect]
     Indication: HORMONE REPLACEMENT THERAPY
     Dosage: DAILY DOSE: 100 MILLIGRAM(S), START DATE: AT LEAST SINCE 2006 PER PATIENT, AT HS
     Route: 065
     Dates: end: 20110529
  3. TOPICAL ESTROGEN [Concomitant]
     Indication: HORMONE REPLACEMENT THERAPY
     Dosage: DAILY DOSE:  UNKNOWN
     Route: 061

REACTIONS (9)
  - FATIGUE [None]
  - RASH PUSTULAR [None]
  - FEELING ABNORMAL [None]
  - OESOPHAGITIS [None]
  - PAIN [None]
  - HYPOPITUITARISM [None]
  - GASTRITIS [None]
  - ACNE [None]
  - CANDIDIASIS [None]
